FAERS Safety Report 24921899 (Version 1)
Quarter: 2025Q1

REPORT INFORMATION
  Report Type: Spontaneous
  Country: FR (occurrence: FR)
  Receive Date: 20250204
  Receipt Date: 20250204
  Transmission Date: 20250409
  Serious: Yes (Life-Threatening)
  Sender: RANBAXY
  Company Number: FR-SUN PHARMACEUTICAL INDUSTRIES LTD-2025RR-491874

PATIENT
  Age: 77 Year
  Sex: Male
  Weight: 66 kg

DRUGS (2)
  1. NOREPINEPHRINE BITARTRATE [Suspect]
     Active Substance: NOREPINEPHRINE BITARTRATE
     Indication: Product used for unknown indication
     Route: 065
  2. URAPIDIL [Suspect]
     Active Substance: URAPIDIL
     Indication: Product administration error
     Route: 040
     Dates: start: 20241202, end: 20241202

REACTIONS (3)
  - Product administration error [Recovered/Resolved]
  - Wrong drug [Recovered/Resolved]
  - Hypotension [Recovered/Resolved]

NARRATIVE: CASE EVENT DATE: 20241202
